FAERS Safety Report 7563389-0 (Version None)
Quarter: 2011Q2

REPORT INFORMATION
  Report Type: 
  Country: None (occurrence: None)
  Receive Date: 20110622
  Receipt Date: 20110614
  Transmission Date: 20111010
  Serious: Yes (Other)
  Sender: FDA-Public Use
  Company Number: A0932094A

PATIENT
  Age: 27 Year
  Sex: Male
  Weight: 80 kg

DRUGS (4)
  1. PHENYTOIN [Suspect]
     Dosage: 100MG THREE TIMES PER DAY
     Route: 065
     Dates: start: 19920101, end: 20101201
  2. VALPROIC ACID [Suspect]
     Dosage: 1000MG THREE TIMES PER DAY
     Route: 065
     Dates: start: 19920101, end: 20101201
  3. PHENOBARBITAL [Concomitant]
     Dosage: 200MG TWICE PER DAY
     Route: 065
     Dates: start: 19920101
  4. LAMICTAL [Suspect]
     Indication: EPILEPSY
     Dosage: 100MG THREE TIMES PER DAY
     Route: 065
     Dates: start: 20100601, end: 20110215

REACTIONS (1)
  - THROMBOCYTOPENIA [None]
